FAERS Safety Report 23110261 (Version 1)
Quarter: 2023Q4

REPORT INFORMATION
  Report Type: Spontaneous
  Country: US (occurrence: None)
  Receive Date: 20231024
  Receipt Date: 20231024
  Transmission Date: 20240109
  Serious: Yes (Hospitalization)
  Sender: FDA-Public Use
  Company Number: None

PATIENT
  Age: 75 Year
  Sex: Male
  Weight: 90 kg

DRUGS (2)
  1. NITROFURANTOIN [Suspect]
     Active Substance: NITROFURANTOIN
     Dates: start: 20230504, end: 20230509
  2. DOCUSATE SODIUM [Suspect]
     Active Substance: DOCUSATE SODIUM
     Dates: start: 20211213, end: 20230509

REACTIONS (3)
  - Diarrhoea [None]
  - Acute kidney injury [None]
  - Constipation [None]

NARRATIVE: CASE EVENT DATE: 20230508
